FAERS Safety Report 15917953 (Version 3)
Quarter: 2019Q2

REPORT INFORMATION
  Report Type: Report from Study
  Country: ZA (occurrence: ZA)
  Receive Date: 20190205
  Receipt Date: 20190422
  Transmission Date: 20190711
  Serious: Yes (Hospitalization, Other)
  Sender: FDA-Public Use
  Company Number: ZA-SA-2019SA025863

PATIENT
  Age: 58 Year
  Sex: Female

DRUGS (6)
  1. CARLOC [Concomitant]
     Active Substance: CARVEDILOL
     Dosage: 6.25 MG, (BEFORE BREAKFAST),QD
     Dates: start: 19950108
  2. MYLAN PANTOPRAZOLE [Concomitant]
     Active Substance: PANTOPRAZOLE SODIUM
     Dosage: UNK
     Dates: start: 19950108
  3. EXFORGE [Concomitant]
     Active Substance: AMLODIPINE BESYLATE\VALSARTAN
     Dosage: 10 MG,(BEFORE BREAKFAST), QD
     Dates: start: 19950108
  4. ECOTRIN [Concomitant]
     Active Substance: ASPIRIN
     Dosage: 81 MG, (BEFORE BREAKFAST),QD
     Dates: start: 19950108
  5. INSULIN GLULISINE [Suspect]
     Active Substance: INSULIN GLULISINE
     Dosage: 14 U, TID, BB-14 UNITS, BL-14 UNITS, BS-14 UNITS
     Dates: start: 20181121
  6. OPTISULIN (INSULIN GLARGINE) [Suspect]
     Active Substance: INSULIN GLARGINE
     Dosage: 42 U, HS, BT-42 UNITS
     Dates: start: 20181121

REACTIONS (5)
  - Product dose omission [Unknown]
  - Dialysis [Unknown]
  - Pain [Recovered/Resolved]
  - Hospitalisation [Unknown]
  - Glycosylated haemoglobin increased [Unknown]

NARRATIVE: CASE EVENT DATE: 20190401
